FAERS Safety Report 23910552 (Version 1)
Quarter: 2024Q2

REPORT INFORMATION
  Report Type: Spontaneous
  Country: US (occurrence: US)
  Receive Date: 20240528
  Receipt Date: 20240528
  Transmission Date: 20240715
  Serious: Yes (Other)
  Sender: FDA-Public Use
  Company Number: US-PFIZER INC-202400178470

PATIENT
  Age: 48 Year
  Sex: Male
  Weight: 68.95 kg

DRUGS (2)
  1. PANTOPRAZOLE [Suspect]
     Active Substance: PANTOPRAZOLE
     Indication: Abdominal discomfort
     Dosage: 40 MG, 1X/DAY
  2. CELECOXIB [Suspect]
     Active Substance: CELECOXIB
     Indication: Back pain
     Dosage: ONLY TAKEN 3 OF THEM
     Route: 048

REACTIONS (3)
  - Hallucination [Unknown]
  - Pain in jaw [Unknown]
  - Intentional product misuse [Unknown]
